FAERS Safety Report 10466455 (Version 3)
Quarter: 2014Q4

REPORT INFORMATION
  Report Type: Spontaneous
  Country: JP (occurrence: None)
  Receive Date: 20140917
  Receipt Date: 20141229
  Transmission Date: 20150528
  Serious: Yes (Death, Hospitalization)
  Sender: FDA-Public Use
  Company Number: 2014MPI00960

PATIENT
  Age: 53 Year
  Sex: Female
  Weight: 58 kg

DRUGS (9)
  1. CRAVIT [Concomitant]
     Active Substance: LEVOFLOXACIN
  2. FUNGUARD (MICAFUNGIN SODIUM) [Concomitant]
  3. DIFLUCAN [Concomitant]
     Active Substance: FLUCONAZOLE
  4. CORTICOSTEROIDS [Concomitant]
     Active Substance: CORTICOSTEROID NOS
  5. SOLUTIONS FOR PARENTERAL NUTRITION () [Suspect]
     Active Substance: UNSPECIFIED INGREDIENT
     Indication: PRODUCT USED FOR UNKNOWN INDICATION
  6. FLOMOX [Concomitant]
     Active Substance: CEFCAPENE PIVOXIL HYDROCHLORIDE HYDRATE
  7. ADCETRIS [Suspect]
     Active Substance: BRENTUXIMAB VEDOTIN
     Indication: ANAPLASTIC LARGE-CELL LYMPHOMA
     Dosage: 1.8 MG/KG, Q21D, IV DRIP
     Route: 041
     Dates: start: 20140422, end: 20140805
  8. ANTIHISTAMINES [Concomitant]
     Active Substance: ANTIHISTAMINES NOS
  9. ZOSYN (PIPERACILLIN SODIUM, TAZOBACTAM SODIUM) [Concomitant]

REACTIONS (11)
  - Ocular discomfort [None]
  - Infection [None]
  - Cystitis [None]
  - Eye discharge [None]
  - Hyperglycaemia [None]
  - Pneumonia [None]
  - Bacteraemia [None]
  - Constipation [None]
  - Diarrhoea [None]
  - Peripheral sensory neuropathy [None]
  - Brain neoplasm [None]

NARRATIVE: CASE EVENT DATE: 20140426
